FAERS Safety Report 9515445 (Version 3)
Quarter: 2013Q4

REPORT INFORMATION
  Report Type: Report from Study
  Country: BR (occurrence: BR)
  Receive Date: 20130911
  Receipt Date: 20131206
  Transmission Date: 20140711
  Serious: Yes (Other)
  Sender: FDA-Public Use
  Company Number: PHHY2013BR006998

PATIENT
  Age: 10 Year
  Sex: Male
  Weight: 31 kg

DRUGS (11)
  1. EXJADE [Suspect]
     Indication: SICKLE CELL ANAEMIA WITH CRISIS
     Dosage: 1000 MG, UNK
  2. EXJADE [Suspect]
     Dosage: 750 MG, DAILY
  3. EXJADE [Suspect]
     Dosage: 500 MG, QOD
  4. HYDREA [Concomitant]
     Indication: HAEMOGLOBIN DECREASED
     Dosage: UNK UKN, UNK
  5. HYDREA [Concomitant]
     Indication: ABDOMINAL PAIN
  6. HYDREA [Concomitant]
     Indication: TRANSFUSION
  7. ENDOFOLIN [Concomitant]
     Indication: RED BLOOD CELL ABNORMALITY
     Dosage: UNK UKN, DAILY
  8. HYDROXYUREA [Concomitant]
     Dosage: 500 MG, BID
     Route: 048
  9. FOLIC ACID [Concomitant]
     Dosage: 5 MG, QD
     Route: 048
  10. PHARMATON [Concomitant]
     Dosage: UNK UKN, WHEN THE PATIENT EXPERIENCES CRISES OF PAIN
  11. OMEPRAZOLE [Concomitant]
     Dosage: UNK UKN, UNK

REACTIONS (12)
  - Red blood cell abnormality [Not Recovered/Not Resolved]
  - Gastritis erosive [Recovering/Resolving]
  - Gastritis [Recovering/Resolving]
  - Sickle cell anaemia with crisis [Recovered/Resolved]
  - Pain [Recovered/Resolved]
  - Eating disorder [Unknown]
  - Retching [Recovered/Resolved]
  - Serum ferritin increased [Not Recovered/Not Resolved]
  - Abdominal pain [Recovering/Resolving]
  - Nausea [Recovering/Resolving]
  - Vitamin D deficiency [Recovering/Resolving]
  - Abdominal discomfort [Unknown]
